FAERS Safety Report 5530062-X (Version None)
Quarter: 2007Q4

REPORT INFORMATION
  Report Type: 
  Country: None (occurrence: None)
  Receive Date: 20071119
  Receipt Date: 20071010
  Transmission Date: 20080405
  Serious: No
  Sender: FDA-Public Use
  Company Number: TPA2007A02081

PATIENT
  Age: 7 Decade
  Sex: Female
  Weight: 74.8435 kg

DRUGS (7)
  1. ROZEREM [Suspect]
     Indication: INSOMNIA
     Dosage: 8 MG, HS, PER ORAL
     Route: 048
     Dates: start: 20071001, end: 20071005
  2. LEXAPRO [Concomitant]
  3. ATENOLOL [Concomitant]
  4. SINGULAIR [Concomitant]
  5. PROTONIX [Concomitant]
  6. EVISTA [Concomitant]
  7. ENZYMATIC REVITALIZING SLEEP FORMULA(ALL OTHER THERAPEUTIC PRODUCTS) [Concomitant]

REACTIONS (4)
  - ABNORMAL DREAMS [None]
  - INITIAL INSOMNIA [None]
  - INSOMNIA [None]
  - MIDDLE INSOMNIA [None]
